FAERS Safety Report 23913812 (Version 2)
Quarter: 2024Q2

REPORT INFORMATION
  Report Type: Spontaneous
  Country: PT (occurrence: PT)
  Receive Date: 20240529
  Receipt Date: 20240615
  Transmission Date: 20240716
  Serious: Yes (Other)
  Sender: FDA-Public Use
  Company Number: PT-TEVA-VS-3202584

PATIENT
  Age: 81 Year
  Sex: Male

DRUGS (1)
  1. METHOTREXATE [Suspect]
     Active Substance: METHOTREXATE
     Indication: Rheumatoid arthritis
     Route: 058

REACTIONS (3)
  - Pancytopenia [Recovered/Resolved]
  - C-reactive protein increased [Recovered/Resolved]
  - Superinfection fungal [Recovered/Resolved]
